FAERS Safety Report 10187299 (Version 1)
Quarter: 2014Q2

REPORT INFORMATION
  Report Type: Spontaneous
  Country: US (occurrence: US)
  Receive Date: 20140522
  Receipt Date: 20140522
  Transmission Date: 20141212
  Serious: Yes (Other)
  Sender: FDA-Public Use
  Company Number: US-SUN PHARMACEUTICAL INDUSTRIES LTD-2014SUN01087

PATIENT
  Age: 64 Year
  Sex: Female

DRUGS (6)
  1. GEMCITABINE INJECTION [Suspect]
     Indication: CHOLANGIOCARCINOMA
     Dosage: 1000 MG/M2, UNK
     Route: 042
  2. GEMCITABINE INJECTION [Suspect]
     Indication: METASTASES TO LIVER
     Dosage: 1000 MG/M2, UNK
     Route: 042
  3. CISPLATIN [Suspect]
     Indication: CHOLANGIOCARCINOMA
     Dosage: 25 MG/M2, UNK
     Route: 042
  4. CISPLATIN [Suspect]
     Indication: METASTASES TO LIVER
  5. OXALIPLATIN [Concomitant]
     Indication: CHOLANGIOCARCINOMA
     Dosage: 100 MG/M2, UNK
     Route: 042
  6. OXALIPLATIN [Concomitant]
     Indication: METASTASES TO LIVER

REACTIONS (2)
  - Retinal ischaemia [Unknown]
  - Renal failure chronic [Unknown]
